FAERS Safety Report 7927635-3 (Version None)
Quarter: 2011Q4

REPORT INFORMATION
  Report Type: 
  Country: None (occurrence: None)
  Receive Date: 20111118
  Receipt Date: 20111107
  Transmission Date: 20120403
  Serious: Yes (Hospitalization)
  Sender: FDA-Public Use
  Company Number: US-ROCHE-383164

PATIENT
  Sex: Female
  Weight: 80.1 kg

DRUGS (6)
  1. CYCLOPHOSPHAMIDE [Suspect]
     Indication: BREAST CANCER
     Route: 042
     Dates: start: 20030404, end: 20040806
  2. PACLITAXEL [Suspect]
     Indication: BREAST CANCER
     Route: 042
     Dates: start: 20030604, end: 20031112
  3. HERCEPTIN [Suspect]
     Route: 042
     Dates: start: 20030604, end: 20040916
  4. HERCEPTIN [Suspect]
     Indication: BREAST CANCER
     Route: 042
  5. HERCEPTIN [Suspect]
     Route: 042
     Dates: start: 20031101, end: 20040901
  6. DOXORUBICIN HCL [Suspect]
     Indication: BREAST CANCER
     Route: 042
     Dates: start: 20030604, end: 20030806

REACTIONS (2)
  - VENTRICULAR DYSFUNCTION [None]
  - MYOCARDIAL INFARCTION [None]
